FAERS Safety Report 9222668 (Version 1)
Quarter: 2013Q2

REPORT INFORMATION
  Report Type: Spontaneous
  Country: US (occurrence: US)
  Receive Date: 20130410
  Receipt Date: 20130410
  Transmission Date: 20140414
  Serious: Yes (Other)
  Sender: FDA-Public Use
  Company Number: US-PFIZER INC-2013108519

PATIENT
  Age: 75 Year
  Sex: Female
  Weight: 86.17 kg

DRUGS (3)
  1. CELEBREX [Suspect]
     Dosage: UNK
  2. LEVOXYL [Suspect]
     Indication: THYROID DISORDER
     Dosage: UNK
  3. ZOLOFT [Suspect]
     Dosage: UNK

REACTIONS (1)
  - Neoplasm malignant [Unknown]
